FAERS Safety Report 12838551 (Version 1)
Quarter: 2016Q4

REPORT INFORMATION
  Report Type: Spontaneous
  Country: US (occurrence: US)
  Receive Date: 20161012
  Receipt Date: 20161012
  Transmission Date: 20170207
  Serious: Yes (Hospitalization, Other)
  Sender: FDA-Public Use
  Company Number: US-009507513-1610USA000728

PATIENT
  Sex: Female
  Weight: 67.12 kg

DRUGS (6)
  1. MECLIZINE [Concomitant]
     Active Substance: MECLIZINE HYDROCHLORIDE
  2. TORSEMIDE. [Suspect]
     Active Substance: TORSEMIDE
     Dosage: 60, QD
  3. DIGOXIN. [Suspect]
     Active Substance: DIGOXIN
     Dosage: 0.125, QD
  4. SIMVASTATIN TABLETS, USP [Concomitant]
     Active Substance: SIMVASTATIN
  5. PRINIVIL [Suspect]
     Active Substance: LISINOPRIL
     Dosage: 2.5, QD
  6. COUMADIN [Concomitant]
     Active Substance: WARFARIN SODIUM

REACTIONS (3)
  - Cardiac failure congestive [Recovering/Resolving]
  - Cardiac failure [Recovering/Resolving]
  - Cardiac amyloidosis [Recovering/Resolving]

NARRATIVE: CASE EVENT DATE: 2016
